FAERS Safety Report 23141255 (Version 6)
Quarter: 2024Q1

REPORT INFORMATION
  Report Type: Spontaneous
  Country: CA (occurrence: CA)
  Receive Date: 20231103
  Receipt Date: 20240302
  Transmission Date: 20240410
  Serious: Yes (Other)
  Sender: FDA-Public Use
  Company Number: CA-CELLTRION INC.-2022CA016692

PATIENT

DRUGS (18)
  1. INFLECTRA [Suspect]
     Active Substance: INFLIXIMAB-DYYB
     Indication: Rheumatoid arthritis
     Dosage: 200 MG EVERY 6 WEEKS
     Route: 042
     Dates: start: 20200302
  2. INFLECTRA [Suspect]
     Active Substance: INFLIXIMAB-DYYB
     Dosage: 200 MG EVERY 6 WEEKS
     Route: 042
     Dates: start: 20210201
  3. INFLECTRA [Suspect]
     Active Substance: INFLIXIMAB-DYYB
     Dosage: 300 MG EVERY 6 WEEKS
     Route: 042
     Dates: start: 20210315
  4. INFLECTRA [Suspect]
     Active Substance: INFLIXIMAB-DYYB
     Dosage: 300 MG EVERY 6 WEEKS
     Route: 042
     Dates: start: 20220808
  5. INFLECTRA [Suspect]
     Active Substance: INFLIXIMAB-DYYB
     Dosage: 300 MG EVERY 6 WEEKS
     Route: 042
     Dates: start: 20221003
  6. INFLECTRA [Suspect]
     Active Substance: INFLIXIMAB-DYYB
     Dosage: 300 MG EVERY 6 WEEKS
     Route: 042
     Dates: start: 20221114
  7. INFLECTRA [Suspect]
     Active Substance: INFLIXIMAB-DYYB
     Dosage: 300 MG EVERY 6 WEEKS
     Route: 042
     Dates: start: 20230227
  8. INFLECTRA [Suspect]
     Active Substance: INFLIXIMAB-DYYB
     Dosage: 300 MG EVERY 6 WEEKS
     Route: 042
     Dates: start: 20230417
  9. INFLECTRA [Suspect]
     Active Substance: INFLIXIMAB-DYYB
     Dosage: 300 MG EVERY 6 WEEKS
     Route: 042
     Dates: start: 20230828
  10. INFLECTRA [Suspect]
     Active Substance: INFLIXIMAB-DYYB
     Dosage: 300 MG, 8 WEEKS AND 1 DAY (PATIENT^S PRESCRIBED TREATMENT ARE EVERY 6 WEEKS)
     Route: 042
     Dates: start: 20231024
  11. INFLECTRA [Suspect]
     Active Substance: INFLIXIMAB-DYYB
     Dosage: 300 MG EVERY 6 WEEKS (300MG, 16 WEEKS AND 3 DAYS)
     Route: 042
     Dates: start: 20240216
  12. AMITRIPTYLINE [Concomitant]
     Active Substance: AMITRIPTYLINE
     Indication: Fibromyalgia
     Route: 065
  13. BENADRYL [Concomitant]
     Active Substance: DIPHENHYDRAMINE HYDROCHLORIDE
     Indication: Premedication
     Dosage: 50 MG
     Dates: start: 20231024, end: 20231024
  14. METHOTREXATE [Concomitant]
     Active Substance: METHOTREXATE
     Indication: Rheumatoid arthritis
     Dosage: 15 MG, WEEKLY
     Route: 048
  15. PREDNISONE [Concomitant]
     Active Substance: PREDNISONE
     Indication: Premedication
     Dosage: 40 MG
     Dates: start: 20231024, end: 20231024
  16. TYLENOL [Concomitant]
     Active Substance: ACETAMINOPHEN
     Indication: Premedication
     Dosage: 1000 MG
     Dates: start: 20231024, end: 20231024
  17. VALTREX [Concomitant]
     Active Substance: VALACYCLOVIR HYDROCHLORIDE
     Indication: Herpes zoster
     Dosage: 1 DF, AS NEEDED
     Route: 065
  18. BENADRYL [Concomitant]
     Active Substance: DIPHENHYDRAMINE HYDROCHLORIDE
     Indication: Premedication
     Dosage: 50 MG
     Dates: start: 20231024, end: 20231024

REACTIONS (7)
  - Blood pressure systolic increased [Not Recovered/Not Resolved]
  - Shoulder arthroplasty [Recovered/Resolved]
  - Condition aggravated [Not Recovered/Not Resolved]
  - Influenza [Not Recovered/Not Resolved]
  - Cough [Not Recovered/Not Resolved]
  - Fatigue [Not Recovered/Not Resolved]
  - Inappropriate schedule of product administration [Unknown]

NARRATIVE: CASE EVENT DATE: 20220901
